FAERS Safety Report 5822929-X (Version None)
Quarter: 2008Q3

REPORT INFORMATION
  Report Type: 
  Country: None (occurrence: None)
  Receive Date: 20080724
  Receipt Date: 20080724
  Transmission Date: 20090109
  Serious: No
  Sender: FDA-Public Use
  Company Number: None

PATIENT
  Age: 48 Year
  Sex: Female
  Weight: 86.1834 kg

DRUGS (2)
  1. AMITIZA [Suspect]
     Indication: IRRITABLE BOWEL SYNDROME
     Dosage: 8 MGC 1 BID PO
     Route: 048
     Dates: start: 20080703, end: 20080803
  2. AMITIZA [Concomitant]

REACTIONS (6)
  - ANORECTAL DISCOMFORT [None]
  - DIARRHOEA [None]
  - DISCOMFORT [None]
  - FREQUENT BOWEL MOVEMENTS [None]
  - MUCOSAL EXCORIATION [None]
  - NAUSEA [None]
